FAERS Safety Report 7654154-4 (Version None)
Quarter: 2011Q3

REPORT INFORMATION
  Report Type: 
  Country: None (occurrence: None)
  Receive Date: 20110803
  Receipt Date: 20110727
  Transmission Date: 20111222
  Serious: Yes (Other)
  Sender: FDA-Public Use
  Company Number: PHHY2011BR68238

PATIENT
  Age: 29 Year
  Sex: Female

DRUGS (1)
  1. TRILEPTAL [Suspect]
     Indication: ARRHYTHMIA
     Dosage: 300 MG, UNK

REACTIONS (4)
  - NEPHROLITHIASIS [None]
  - AGITATION [None]
  - DIZZINESS [None]
  - URINARY RETENTION [None]
